FAERS Safety Report 9568411 (Version 2)
Quarter: 2014Q1

REPORT INFORMATION
  Report Type: Spontaneous
  Country: US (occurrence: US)
  Receive Date: 20130930
  Receipt Date: 20140203
  Transmission Date: 20141002
  Serious: No
  Sender: FDA-Public Use
  Company Number: US-AMGEN-USASP2013053850

PATIENT
  Age: 2 Month
  Sex: Male
  Weight: 3.18 kg

DRUGS (7)
  1. ENBREL [Suspect]
     Indication: PRODUCT USED FOR UNKNOWN INDICATION
     Dosage: 50 MG, ONE TIME WEEKLY
     Route: 064
     Dates: start: 201004
  2. PLAQUENIL                          /00072602/ [Concomitant]
     Dosage: 200 MG, 2 X DAY
     Route: 048
     Dates: start: 200708
  3. FOLIC ACID [Concomitant]
     Dosage: 1 MG, 1XDAY
     Route: 048
     Dates: start: 200708
  4. PREDNISONE [Concomitant]
     Indication: ARTHRALGIA
     Dosage: 2 MG, 1 X DAY
     Route: 048
     Dates: start: 201202, end: 20131111
  5. EXPECTA LIPIL [Concomitant]
     Dosage: UNK UNK, 1 X DAY
     Dates: start: 20120903
  6. PRENATAL VITAMINS                  /02014401/ [Concomitant]
     Dosage: UNK UNK, 1 X DAY
     Route: 048
     Dates: start: 20120903
  7. CALCIUM [Concomitant]
     Dosage: 600 MG, 3XDAY
     Route: 048
     Dates: start: 201002

REACTIONS (2)
  - Dyspnoea [Unknown]
  - Milk allergy [Unknown]
